FAERS Safety Report 14661778 (Version 1)
Quarter: 2018Q1

REPORT INFORMATION
  Report Type: Spontaneous
  Country: US (occurrence: US)
  Receive Date: 20180318
  Receipt Date: 20180318
  Transmission Date: 20180509
  Serious: No
  Sender: FDA-Public Use
  Company Number: None

PATIENT
  Age: 62 Year
  Sex: Female

DRUGS (1)
  1. ETOPOSIDE CAP 50MG [Suspect]
     Active Substance: ETOPOSIDE

REACTIONS (3)
  - Throat tightness [None]
  - Dysphagia [None]
  - Dry throat [None]

NARRATIVE: CASE EVENT DATE: 20180316
